FAERS Safety Report 9580814 (Version 1)
Quarter: 2013Q4

REPORT INFORMATION
  Report Type: Spontaneous
  Country: US (occurrence: None)
  Receive Date: 20131001
  Receipt Date: 20131001
  Transmission Date: 20140711
  Serious: No
  Sender: FDA-Public Use
  Company Number: None

PATIENT
  Age: 66 Year
  Sex: Female
  Weight: 104.33 kg

DRUGS (1)
  1. ZOLPIDEM [Suspect]
     Route: 048
     Dates: start: 2011

REACTIONS (5)
  - Insomnia [None]
  - Hallucination [None]
  - Feeling abnormal [None]
  - Product substitution issue [None]
  - Therapeutic response unexpected with drug substitution [None]
